FAERS Safety Report 14492368 (Version 5)
Quarter: 2018Q2

REPORT INFORMATION
  Report Type: Spontaneous
  Country: CA (occurrence: CA)
  Receive Date: 20180206
  Receipt Date: 20180416
  Transmission Date: 20180711
  Serious: Yes (Other)
  Sender: FDA-Public Use
  Company Number: CA-CELLTRION INC.-2017CA017219

PATIENT

DRUGS (8)
  1. INFLECTRA [Suspect]
     Active Substance: INFLIXIMAB-DYYB
     Dosage: 306 MG(5 MG PER KG),EVERY 0, 2, 6 WEEKS, THEN EVERY 8 WEEKS
     Route: 042
     Dates: start: 20180201
  2. INFLECTRA [Suspect]
     Active Substance: INFLIXIMAB-DYYB
     Indication: COLITIS ULCERATIVE
     Dosage: 306 MG (5 MG PER KG),EVERY 0, 2, 6 WEEKS, THEN EVERY 8 WEEKS
     Route: 042
     Dates: start: 20170829, end: 20171012
  3. T4 [Concomitant]
     Active Substance: LEVOTHYROXINE
     Dosage: UNK, QD
     Route: 048
  4. FISH OIL [Concomitant]
     Active Substance: FISH OIL
     Dosage: UNK, QD
     Route: 048
  5. PREDNISONE. [Concomitant]
     Active Substance: PREDNISONE
     Dosage: 40 MG, TO BE TAPERED OFF
  6. T3 [Concomitant]
     Active Substance: LIOTHYRONINE SODIUM
     Dosage: UNK, QD
     Route: 048
  7. VITAMIN B12 [Concomitant]
     Active Substance: CYANOCOBALAMIN
     Dosage: UNK, QD
     Route: 048
  8. CALCIUM [Concomitant]
     Active Substance: CALCIUM
     Dosage: UNK, QD
     Route: 048

REACTIONS (9)
  - Off label use [Unknown]
  - Dyspnoea [Recovering/Resolving]
  - Palpitations [Recovering/Resolving]
  - Weight increased [Unknown]
  - Anaphylactic reaction [Recovering/Resolving]
  - Anxiety [Unknown]
  - Measles [Unknown]
  - Flushing [Recovering/Resolving]
  - Blood pressure fluctuation [Unknown]

NARRATIVE: CASE EVENT DATE: 2017
